FAERS Safety Report 16008538 (Version 1)
Quarter: 2019Q1

REPORT INFORMATION
  Report Type: Spontaneous
  Country: GB (occurrence: GB)
  Receive Date: 20190225
  Receipt Date: 20190225
  Transmission Date: 20190418
  Serious: Yes (Disabling)
  Sender: FDA-Public Use
  Company Number: GB-SUN PHARMACEUTICAL INDUSTRIES LTD-2019RR-199996

PATIENT
  Age: 23 Year
  Sex: Male
  Weight: 70 kg

DRUGS (1)
  1. ISOTRETINOIN. [Suspect]
     Active Substance: ISOTRETINOIN
     Indication: HIDRADENITIS
     Dosage: 40 MILLIGRAM
     Route: 048

REACTIONS (1)
  - Erectile dysfunction [Not Recovered/Not Resolved]
